FAERS Safety Report 8142111-3 (Version None)
Quarter: 2012Q1

REPORT INFORMATION
  Report Type: 
  Country: None (occurrence: None)
  Receive Date: 20120103
  Receipt Date: 20111025
  Transmission Date: 20120608
  Serious: No
  Sender: FDA-Public Use
  Company Number: AE-2011-002596

PATIENT
  Age: 58 Year
  Sex: Male
  Weight: 65.318 kg

DRUGS (6)
  1. LISINOPRIL [Concomitant]
  2. PROTONIX [Concomitant]
  3. MULTI-VITAMINS [Concomitant]
  4. PEGASYS [Concomitant]
  5. RIBAVIRIN [Concomitant]
  6. INCIVEK [Suspect]
     Dosage: 2250 MG (750 MG,1 IN 8 HR)
     Dates: start: 20110924, end: 20111024

REACTIONS (1)
  - RASH [None]
